FAERS Safety Report 9689374 (Version 2)
Quarter: 2014Q1

REPORT INFORMATION
  Report Type: Spontaneous
  Country: US (occurrence: US)
  Receive Date: 20131114
  Receipt Date: 20140103
  Transmission Date: 20141002
  Serious: Yes (Hospitalization)
  Sender: FDA-Public Use
  Company Number: US-B.I. PHARMACEUTICALS,INC./RIDGEFIELD-2013-BI-36707BP

PATIENT
  Age: 74 Year
  Sex: Female
  Weight: 61 kg

DRUGS (14)
  1. SPIRIVA [Suspect]
     Indication: CHRONIC OBSTRUCTIVE PULMONARY DISEASE
     Dosage: 18 MCG
     Route: 048
     Dates: start: 2006
  2. IMDUR [Concomitant]
     Indication: CARDIAC DISORDER
     Dosage: 30 MG
     Route: 048
  3. PLAVIX [Concomitant]
     Indication: STENT PLACEMENT
     Dosage: 75 MG
     Route: 048
  4. LIPITOR [Concomitant]
     Dosage: 20 MG
     Route: 048
  5. SYNTHROID [Concomitant]
     Indication: THYROID DISORDER
     Dosage: 100 MCG
     Route: 048
  6. ASPIRIN [Concomitant]
     Dosage: 81 MG
     Route: 048
  7. CARDIZEM [Concomitant]
     Indication: HYPERTENSION
     Dosage: 120 MG
     Route: 048
  8. ADVAIR [Concomitant]
     Indication: CHRONIC OBSTRUCTIVE PULMONARY DISEASE
     Dosage: STRENGTH: 250/50 MCG; DAILY DOSE: 500/100 MCG
     Route: 055
  9. PROVENTIL HFA [Concomitant]
     Indication: CHRONIC OBSTRUCTIVE PULMONARY DISEASE
     Route: 055
  10. DIOVAN HCT [Concomitant]
     Indication: HYPERTENSION
     Dosage: STRENGTH: 20/12.5 MG; DAILY DOSE: 20/12.5 MG
     Route: 048
  11. HYDROXYUREA [Concomitant]
     Indication: THROMBOCYTOSIS
     Route: 048
  12. HYDROXYUREA [Concomitant]
     Route: 048
  13. ZANTAC [Concomitant]
     Indication: DIVERTICULITIS
     Dosage: 75 MG
     Route: 048
  14. CARAFATE [Concomitant]
     Indication: DIVERTICULITIS
     Route: 048

REACTIONS (3)
  - Colitis ulcerative [Recovered/Resolved]
  - Atypical pneumonia [Not Recovered/Not Resolved]
  - Incorrect route of drug administration [Recovered/Resolved]
